FAERS Safety Report 21126167 (Version 1)
Quarter: 2022Q3

REPORT INFORMATION
  Report Type: Spontaneous
  Country: US (occurrence: None)
  Receive Date: 20220724
  Receipt Date: 20220724
  Transmission Date: 20221026
  Serious: No
  Sender: FDA-Public Use
  Company Number: None

PATIENT
  Age: 44 Year
  Sex: Female
  Weight: 101.25 kg

DRUGS (1)
  1. TOPIRAMATE [Suspect]
     Active Substance: TOPIRAMATE
     Indication: Migraine
     Dosage: FREQUENCY : AT BEDTIME;?
     Route: 048
     Dates: start: 20220320, end: 20220701

REACTIONS (6)
  - Hypoaesthesia [None]
  - Hypoaesthesia [None]
  - Paraesthesia [None]
  - Alopecia [None]
  - Vision blurred [None]
  - Dizziness [None]

NARRATIVE: CASE EVENT DATE: 20220501
